FAERS Safety Report 7232760-9 (Version None)
Quarter: 2011Q1

REPORT INFORMATION
  Report Type: 
  Country: None (occurrence: None)
  Receive Date: 20110119
  Receipt Date: 20110110
  Transmission Date: 20110831
  Serious: Yes (Death)
  Sender: FDA-Public Use
  Company Number: US-PFIZER INC-2011004788

PATIENT
  Age: 52 Year
  Sex: Female

DRUGS (2)
  1. HYDROXYZINE HCL [Suspect]
     Route: 048
  2. TRAZODONE [Suspect]
     Route: 048

REACTIONS (1)
  - COMPLETED SUICIDE [None]
